FAERS Safety Report 21897092 (Version 1)
Quarter: 2023Q1

REPORT INFORMATION
  Report Type: Spontaneous
  Country: US (occurrence: US)
  Receive Date: 20230123
  Receipt Date: 20230123
  Transmission Date: 20230418
  Serious: Yes (Other)
  Sender: FDA-Public Use
  Company Number: US-GLAXOSMITHKLINE-US2023007464

PATIENT

DRUGS (1)
  1. BREO ELLIPTA [Suspect]
     Active Substance: FLUTICASONE FUROATE\VILANTEROL TRIFENATATE
     Indication: Asthma-chronic obstructive pulmonary disease overlap syndrome
     Dosage: UNK
     Dates: start: 202211, end: 202211

REACTIONS (4)
  - Syncope [Unknown]
  - Dizziness [Unknown]
  - Feeling hot [Unknown]
  - Tremor [Unknown]

NARRATIVE: CASE EVENT DATE: 20221101
